FAERS Safety Report 15108334 (Version 1)
Quarter: 2018Q3

REPORT INFORMATION
  Report Type: Spontaneous
  Country: GB (occurrence: GB)
  Receive Date: 20180705
  Receipt Date: 20180705
  Transmission Date: 20181010
  Serious: Yes (Other)
  Sender: FDA-Public Use
  Company Number: GB-ROCHE-2141260

PATIENT
  Sex: Male

DRUGS (2)
  1. TECENTRIQ [Suspect]
     Active Substance: ATEZOLIZUMAB
     Indication: LUNG NEOPLASM MALIGNANT
     Dosage: LAST THREE WEEKS ?CYCLE 2.
     Route: 042
     Dates: start: 20180525
  2. WARFARIN [Concomitant]
     Active Substance: WARFARIN
     Dosage: 18 MONTHS
     Route: 065

REACTIONS (1)
  - International normalised ratio increased [Unknown]
